FAERS Safety Report 22340224 (Version 2)
Quarter: 2023Q2

REPORT INFORMATION
  Report Type: Spontaneous
  Country: US (occurrence: US)
  Receive Date: 20230518
  Receipt Date: 20230608
  Transmission Date: 20230721
  Serious: No
  Sender: FDA-Public Use
  Company Number: US-TEVA-2023-US-2885258

PATIENT
  Age: 50 Year
  Sex: Female

DRUGS (1)
  1. AMPHETAMINE SULFATE\DEXTROAMPHETAMINE [Suspect]
     Active Substance: AMPHETAMINE SULFATE\DEXTROAMPHETAMINE
     Indication: Attention deficit hyperactivity disorder
     Dosage: REGULAR RELEASE
     Route: 065
     Dates: start: 2011

REACTIONS (6)
  - Agitation [Unknown]
  - Balance disorder [Unknown]
  - Head discomfort [Unknown]
  - Somnolence [Unknown]
  - Feeling abnormal [Unknown]
  - Lethargy [Unknown]

NARRATIVE: CASE EVENT DATE: 20230401
